FAERS Safety Report 25431001 (Version 3)
Quarter: 2025Q3

REPORT INFORMATION
  Report Type: Spontaneous
  Country: EU (occurrence: EU)
  Receive Date: 20250612
  Receipt Date: 20250709
  Transmission Date: 20251020
  Serious: No
  Sender: ABBVIE
  Company Number: EU-RICHTER-2025-GR-006467

PATIENT
  Age: 33 Year
  Sex: Female

DRUGS (1)
  1. LEVONORGESTREL [Suspect]
     Active Substance: LEVONORGESTREL
     Indication: Contraception
     Route: 015
     Dates: start: 20240807

REACTIONS (11)
  - Somnolence [Unknown]
  - Vaginal haemorrhage [Unknown]
  - Dysgeusia [Unknown]
  - Pyrexia [Unknown]
  - Maternal exposure during pregnancy [Recovered/Resolved]
  - Viral infection [Unknown]
  - Nausea [Unknown]
  - Myalgia [Unknown]
  - Somnolence [Unknown]
  - Medical device monitoring error [Recovered/Resolved]
  - Contraindicated device used [Recovered/Resolved]

NARRATIVE: CASE EVENT DATE: 20240101
